FAERS Safety Report 8007557-2 (Version None)
Quarter: 2011Q4

REPORT INFORMATION
  Report Type: 
  Country: None (occurrence: None)
  Receive Date: 20111227
  Receipt Date: 20111215
  Transmission Date: 20120403
  Serious: Yes (Hospitalization)
  Sender: FDA-Public Use
  Company Number: JP-NOVOPROD-340434

PATIENT

DRUGS (1)
  1. PENFILL 40R CHU [Suspect]
     Indication: TYPE 2 DIABETES MELLITUS
     Dosage: 12 U, QD
     Route: 058
     Dates: start: 20000501

REACTIONS (1)
  - DIABETIC KETOACIDOSIS [None]
